FAERS Safety Report 16528922 (Version 1)
Quarter: 2019Q3

REPORT INFORMATION
  Report Type: Spontaneous
  Country: US (occurrence: US)
  Receive Date: 20190703
  Receipt Date: 20190703
  Transmission Date: 20191004
  Serious: Yes (Life-Threatening, Hospitalization, Other)
  Sender: FDA-Public Use
  Company Number: US-ABBVIE-19P-163-2837607-00

PATIENT
  Age: 21 Year
  Sex: Female

DRUGS (2)
  1. SERTRALINE [Concomitant]
     Active Substance: SERTRALINE HYDROCHLORIDE
     Indication: PRODUCT USED FOR UNKNOWN INDICATION
  2. VALPROIC ACID. [Suspect]
     Active Substance: VALPROIC ACID
     Indication: MAJOR DEPRESSION
     Route: 065

REACTIONS (23)
  - Malaise [Unknown]
  - Aspartate aminotransferase increased [Recovering/Resolving]
  - Alanine aminotransferase increased [Recovering/Resolving]
  - Hypotension [Unknown]
  - Eosinophilia [Unknown]
  - Disturbance in attention [Unknown]
  - Hepatotoxicity [Recovering/Resolving]
  - Liver injury [Recovering/Resolving]
  - Platelet count decreased [Unknown]
  - Tachycardia [Unknown]
  - Mental status changes [Unknown]
  - Hepatic encephalopathy [Recovered/Resolved]
  - Ammonia increased [Unknown]
  - Drug reaction with eosinophilia and systemic symptoms [Unknown]
  - Lethargy [Unknown]
  - Transaminases increased [Recovering/Resolving]
  - Acute hepatic failure [Recovering/Resolving]
  - Delirium [Recovered/Resolved]
  - White blood cell count increased [Unknown]
  - Decreased appetite [Unknown]
  - Insomnia [Unknown]
  - Rash morbilliform [Unknown]
  - Liver function test increased [Recovering/Resolving]
